APPROVED DRUG PRODUCT: MAXOLON
Active Ingredient: METOCLOPRAMIDE HYDROCHLORIDE
Strength: EQ 10MG BASE
Dosage Form/Route: TABLET;ORAL
Application: A070106 | Product #001
Applicant: KING PHARMACEUTICALS INC
Approved: Mar 4, 1986 | RLD: No | RS: No | Type: DISCN